FAERS Safety Report 7015224-7 (Version None)
Quarter: 2010Q3

REPORT INFORMATION
  Report Type: 
  Country: None (occurrence: None)
  Receive Date: 20100927
  Receipt Date: 20100917
  Transmission Date: 20110219
  Serious: Yes (Other)
  Sender: FDA-Public Use
  Company Number: PHHY2010JP52254

PATIENT
  Sex: Male

DRUGS (9)
  1. AFINITOR [Suspect]
     Indication: METASTATIC RENAL CELL CARCINOMA
     Dosage: 10 MG, DAILY
     Route: 048
     Dates: start: 20100615
  2. INTERFERON ALFA [Concomitant]
     Dosage: 6000000 IU, UNK
     Route: 042
     Dates: start: 20071205, end: 20090630
  3. NEXAVAR [Concomitant]
     Dosage: 800 MG, UNK
     Route: 048
     Dates: start: 20090707, end: 20100614
  4. LOXOPROFEN [Concomitant]
     Dosage: 120 MG, UNK
     Route: 048
  5. REBAMIPIDE [Concomitant]
     Dosage: 200 MG, UNK
     Route: 048
  6. MICARDIS [Concomitant]
     Dosage: 20 MG, UNK
     Route: 048
  7. GASTER D [Concomitant]
     Dosage: 20 MG, UNK
     Route: 048
  8. DUROTEP [Concomitant]
     Dosage: 8.4 UNK, UNK
     Route: 062
  9. MAGMITT [Concomitant]
     Dosage: 1500 MG, UNK
     Route: 048
     Dates: start: 20100706

REACTIONS (9)
  - ALANINE AMINOTRANSFERASE INCREASED [None]
  - ASPARTATE AMINOTRANSFERASE INCREASED [None]
  - BLOOD LACTATE DEHYDROGENASE INCREASED [None]
  - BLOOD UREA INCREASED [None]
  - HAEMOGLOBIN DECREASED [None]
  - HYPERKALAEMIA [None]
  - PLATELET COUNT DECREASED [None]
  - RED BLOOD CELL COUNT DECREASED [None]
  - WHITE BLOOD CELL COUNT DECREASED [None]
